FAERS Safety Report 6097578-1 (Version None)
Quarter: 2009Q1

REPORT INFORMATION
  Report Type: 
  Country: None (occurrence: None)
  Receive Date: 20090227
  Receipt Date: 20081205
  Transmission Date: 20090719
  Serious: No
  Sender: FDA-Public Use
  Company Number: A0759304A

PATIENT
  Age: 36 Year
  Sex: Female

DRUGS (5)
  1. IMITREX [Suspect]
     Indication: MIGRAINE
     Route: 058
     Dates: start: 19920101
  2. IMITREX [Suspect]
     Route: 045
  3. IMITREX [Suspect]
     Route: 048
  4. SYNTHROID [Concomitant]
  5. UNKNOWN ANTIDEPRESSANT [Concomitant]

REACTIONS (1)
  - FEELING HOT [None]
